FAERS Safety Report 6361105-1 (Version None)
Quarter: 2009Q3

REPORT INFORMATION
  Report Type: 
  Country: None (occurrence: None)
  Receive Date: 20090918
  Receipt Date: 20090909
  Transmission Date: 20100115
  Serious: Yes (Other)
  Sender: FDA-Public Use
  Company Number: US-AVENTIS-200918119US

PATIENT
  Sex: Female

DRUGS (3)
  1. LANTUS [Suspect]
     Route: 058
     Dates: start: 20040101
  2. OPTICLIK (INSULIN INJECTION PEN) [Suspect]
     Dates: start: 20040101
  3. NOVOLOG [Concomitant]

REACTIONS (2)
  - RETINAL DISORDER [None]
  - VISUAL ACUITY REDUCED [None]
